FAERS Safety Report 6072229-0 (Version None)
Quarter: 2009Q1

REPORT INFORMATION
  Report Type: 
  Country: None (occurrence: None)
  Receive Date: 20090206
  Receipt Date: 20090206
  Transmission Date: 20090719
  Serious: Yes (Other)
  Sender: FDA-Public Use
  Company Number: None

PATIENT

DRUGS (1)
  1. LIDOCAINE 2% [Suspect]
     Indication: PREOPERATIVE CARE
     Dosage: 20 ML USED ONE TIME SQ
     Route: 058
     Dates: start: 20090126, end: 20090203

REACTIONS (2)
  - INADEQUATE ANALGESIA [None]
  - PRODUCT QUALITY ISSUE [None]
